FAERS Safety Report 7286928-6 (Version None)
Quarter: 2011Q1

REPORT INFORMATION
  Report Type: 
  Country: None (occurrence: None)
  Receive Date: 20110211
  Receipt Date: 20110131
  Transmission Date: 20110831
  Serious: Yes (Hospitalization)
  Sender: FDA-Public Use
  Company Number: US-BIOGENIDEC-2010BI036866

PATIENT
  Sex: Female

DRUGS (1)
  1. AVONEX [Suspect]
     Indication: MULTIPLE SCLEROSIS
     Route: 030
     Dates: start: 20050201

REACTIONS (8)
  - CYST [None]
  - STRESS [None]
  - HEARING IMPAIRED [None]
  - TREMOR [None]
  - FATIGUE [None]
  - HYPERTENSION [None]
  - SENSORY DISTURBANCE [None]
  - ASTHENIA [None]
